FAERS Safety Report 8519124-2 (Version None)
Quarter: 2012Q3

REPORT INFORMATION
  Report Type: 
  Country: None (occurrence: None)
  Receive Date: 20120718
  Receipt Date: 20120713
  Transmission Date: 20120928
  Serious: Yes (Life-Threatening, Hospitalization)
  Sender: FDA-Public Use
  Company Number: US-CELGENEUS-163-21880-12031082

PATIENT
  Sex: Male

DRUGS (11)
  1. REVLIMID [Suspect]
     Indication: MULTIPLE MYELOMA
     Dosage: 25 MILLIGRAM
     Route: 048
     Dates: start: 20120216, end: 20120220
  2. PROTONIX [Concomitant]
     Dosage: 40 MILLIGRAM
     Route: 048
  3. LANTUS [Concomitant]
     Dosage: 10 IU (INTERNATIONAL UNIT)
     Route: 065
  4. AUGMENTIN '500' [Concomitant]
     Indication: BRONCHITIS
     Dosage: 875 MILLIGRAM
     Route: 048
  5. OXYCONTIN [Concomitant]
     Route: 065
  6. SUCRALFATE [Concomitant]
     Dosage: 1 GRAM
     Route: 048
  7. ZANTAC [Concomitant]
     Dosage: 150 MILLIGRAM
     Route: 048
  8. PREDNISONE [Concomitant]
     Route: 065
  9. CARAFATE [Concomitant]
     Route: 065
  10. PERCOCET [Concomitant]
     Indication: PAIN
     Route: 065
  11. DECADRON [Concomitant]
     Dosage: 2 MILLIGRAM
     Route: 048

REACTIONS (4)
  - PANCYTOPENIA [None]
  - HEPATIC FAILURE [None]
  - RENAL FAILURE [None]
  - ATRIAL FIBRILLATION [None]
